FAERS Safety Report 16576924 (Version 1)
Quarter: 2019Q3

REPORT INFORMATION
  Report Type: Spontaneous
  Country: US (occurrence: US)
  Receive Date: 20190715
  Receipt Date: 20190715
  Transmission Date: 20191004
  Serious: Yes (Disabling)
  Sender: FDA-Public Use
  Company Number: None

PATIENT
  Age: 70 Year
  Sex: Female
  Weight: 53.1 kg

DRUGS (1)
  1. IBANDRONATE 150 MG GENERIC FOR BONIVA 150MG TAB ARROW PHARM MALTA LIMITED [Suspect]
     Active Substance: IBANDRONATE SODIUM
     Indication: BONE DENSITY ABNORMAL
     Dosage: ?          OTHER FREQUENCY:ONCE A WEEK;?
     Route: 048
     Dates: start: 20190624, end: 20190624

REACTIONS (6)
  - Dyspepsia [None]
  - Dysphagia [None]
  - Headache [None]
  - Wheezing [None]
  - Arthralgia [None]
  - Back pain [None]

NARRATIVE: CASE EVENT DATE: 20190624
